FAERS Safety Report 21594783 (Version 2)
Quarter: 2022Q4

REPORT INFORMATION
  Report Type: Spontaneous
  Country: FR (occurrence: None)
  Receive Date: 20221115
  Receipt Date: 20221130
  Transmission Date: 20230113
  Serious: Yes (Hospitalization, Other)
  Sender: FDA-Public Use
  Company Number: 2022A371956

PATIENT
  Age: 22 Year
  Sex: Female

DRUGS (1)
  1. FASENRA [Suspect]
     Active Substance: BENRALIZUMAB
     Indication: Asthma
     Route: 058
     Dates: start: 202202

REACTIONS (4)
  - Asthma [Recovered/Resolved]
  - Eosinophilic granulomatosis with polyangiitis [Unknown]
  - Inappropriate schedule of product administration [Recovered/Resolved]
  - Treatment noncompliance [Unknown]
